FAERS Safety Report 6439148-9 (Version None)
Quarter: 2009Q4

REPORT INFORMATION
  Report Type: 
  Country: None (occurrence: None)
  Receive Date: 20091113
  Receipt Date: 20091110
  Transmission Date: 20100525
  Serious: Yes (Hospitalization)
  Sender: FDA-Public Use
  Company Number: US-BRISTOL-MYERS SQUIBB COMPANY-14850994

PATIENT
  Age: 74 Year
  Sex: Female

DRUGS (18)
  1. PACLITAXEL [Suspect]
     Indication: NON-SMALL CELL LUNG CANCER
     Route: 042
     Dates: start: 20090708, end: 20090923
  2. CARBOPLATIN [Suspect]
     Indication: NON-SMALL CELL LUNG CANCER
     Route: 042
     Dates: start: 20090708, end: 20090923
  3. DILTIAZEM CD [Concomitant]
     Indication: HYPERTENSION
     Dates: start: 20050101
  4. METFORMIN HCL [Concomitant]
     Indication: DIABETES MELLITUS
     Route: 065
     Dates: start: 20020101
  5. PREVACID [Concomitant]
     Indication: DYSPEPSIA
     Route: 065
     Dates: start: 19960101
  6. CLARITIN [Concomitant]
     Indication: HYPERSENSITIVITY
     Route: 065
     Dates: start: 19970101
  7. GLYBURIDE [Concomitant]
     Indication: DIABETES MELLITUS
     Route: 065
     Dates: start: 20050101
  8. NORTASE [Concomitant]
     Indication: DYSPEPSIA
     Route: 065
     Dates: start: 19960101
  9. THEOPHYLLINE [Concomitant]
     Indication: ASTHMA
     Route: 065
     Dates: start: 19960101
  10. ALBUTEROL [Concomitant]
     Indication: ASTHMA
     Route: 065
     Dates: start: 19960101
  11. FLONASE [Concomitant]
     Indication: HYPERSENSITIVITY
     Route: 065
     Dates: start: 19960101
  12. ADVAIR DISKUS 100/50 [Concomitant]
     Indication: ASTHMA
     Route: 065
     Dates: start: 20070101
  13. LEXAPRO [Concomitant]
     Indication: DEPRESSION
     Route: 065
     Dates: start: 19980101
  14. TYLENOL (CAPLET) [Concomitant]
     Indication: PAIN
     Route: 065
  15. PATANOL [Concomitant]
     Indication: HYPERSENSITIVITY
     Route: 065
  16. BENICAR [Concomitant]
     Indication: HYPERTENSION
     Route: 065
  17. MAGNESIUM SUPPLEMENT [Concomitant]
     Indication: BLOOD MAGNESIUM DECREASED
     Route: 065
     Dates: start: 20090819, end: 20090901
  18. TRIPLE ANTIBIOTIC [Concomitant]
     Indication: PARONYCHIA
     Route: 065
     Dates: start: 20090920

REACTIONS (1)
  - SMALL INTESTINAL OBSTRUCTION [None]
